FAERS Safety Report 11266110 (Version 1)
Quarter: 2015Q3

REPORT INFORMATION
  Report Type: Spontaneous
  Country: US (occurrence: US)
  Receive Date: 20150713
  Receipt Date: 20150713
  Transmission Date: 20151125
  Serious: No
  Sender: FDA-Public Use
  Company Number: US-MEDA-2015020046

PATIENT
  Sex: Male

DRUGS (1)
  1. CESAMET [Suspect]
     Active Substance: NABILONE
     Route: 048
     Dates: end: 201502

REACTIONS (4)
  - Drug withdrawal syndrome [Unknown]
  - Pain [Unknown]
  - Dizziness [Unknown]
  - Nausea [Unknown]

NARRATIVE: CASE EVENT DATE: 201502
